FAERS Safety Report 7609222-X (Version None)
Quarter: 2011Q3

REPORT INFORMATION
  Report Type: 
  Country: None (occurrence: None)
  Receive Date: 20110714
  Receipt Date: 20110705
  Transmission Date: 20111222
  Serious: Yes (Life-Threatening)
  Sender: FDA-Public Use
  Company Number: GB-TEVA-289729ISR

PATIENT
  Age: 85 Year
  Sex: Female
  Weight: 89 kg

DRUGS (1)
  1. ALENDRONIC ACID [Suspect]
     Indication: OSTEOPOROSIS
     Dosage: 10 MILLIGRAM;
     Route: 048
     Dates: start: 20050210, end: 20110323

REACTIONS (1)
  - OESOPHAGEAL CARCINOMA [None]
